FAERS Safety Report 4465496-8 (Version None)
Quarter: 2004Q4

REPORT INFORMATION
  Report Type: 
  Country: None (occurrence: None)
  Receive Date: 20041004
  Receipt Date: 20040928
  Transmission Date: 20050328
  Serious: Yes (Hospitalization)
  Sender: FDA-Public Use
  Company Number: PHBS2004ES12995

PATIENT
  Age: 51 Year
  Sex: Female

DRUGS (4)
  1. ANAFRANIL [Suspect]
     Dosage: 75 MG/D
     Route: 048
  2. TRILEPTAL [Suspect]
     Dosage: 1200 MG/D
     Route: 065
  3. HIGROTONA [Suspect]
     Dosage: 50 MG, Q48H
     Route: 065
  4. LORMETAZEPAM [Concomitant]
     Dosage: 10 MG/D
     Route: 065

REACTIONS (3)
  - DRUG INTERACTION [None]
  - FALL [None]
  - INTRACRANIAL INJURY [None]
